FAERS Safety Report 9535585 (Version 2)
Quarter: 2013Q3

REPORT INFORMATION
  Report Type: Report from Study
  Country: DE (occurrence: DE)
  Receive Date: 20130919
  Receipt Date: 20130921
  Transmission Date: 20140515
  Serious: Yes (Hospitalization)
  Sender: FDA-Public Use
  Company Number: DE-ROCHE-1275727

PATIENT
  Age: 58 Year
  Sex: Male
  Weight: 58 kg

DRUGS (6)
  1. RITUXIMAB [Suspect]
     Indication: RHEUMATOID ARTHRITIS
     Dosage: MOST RECENT DOSE DOSE REEIVED PRIOR TO SAE ON ON 05/MAR/2013.
     Route: 042
     Dates: start: 20120626
  2. PREDNISOLON [Concomitant]
     Indication: RHEUMATOID ARTHRITIS
     Route: 048
     Dates: start: 2002
  3. OXYCODON [Concomitant]
     Indication: RHEUMATOID ARTHRITIS
     Route: 048
     Dates: start: 2002
  4. AMINEURIN [Concomitant]
     Indication: FIBROMYALGIA
     Route: 048
     Dates: start: 2002
  5. SPIRIVA [Concomitant]
     Indication: CHRONIC OBSTRUCTIVE PULMONARY DISEASE
     Route: 048
  6. PANTOZOL (GERMANY) [Concomitant]
     Route: 048

REACTIONS (1)
  - Femur fracture [Recovered/Resolved with Sequelae]
